FAERS Safety Report 5321900-4 (Version None)
Quarter: 2007Q2

REPORT INFORMATION
  Report Type: 
  Country: None (occurrence: None)
  Receive Date: 20070510
  Receipt Date: 20070501
  Transmission Date: 20071010
  Serious: Yes (Other)
  Sender: FDA-Public Use
  Company Number: JP-MERCK-0704USA02137

PATIENT
  Age: 52 Year
  Sex: Male
  Weight: 62 kg

DRUGS (7)
  1. ALDOMET [Suspect]
     Indication: HYPERTENSION
     Route: 048
     Dates: start: 20070319, end: 20070326
  2. RENAGEL [Concomitant]
     Indication: BLOOD PHOSPHORUS INCREASED
     Route: 048
     Dates: start: 20040414, end: 20070424
  3. SELBEX [Concomitant]
     Indication: GASTRITIS
     Route: 048
     Dates: start: 20040812, end: 20070424
  4. RHYTHMY [Concomitant]
     Indication: INSOMNIA
     Route: 048
     Dates: start: 20050403, end: 20070424
  5. OLMETEC [Concomitant]
     Indication: HYPERTENSION
     Route: 048
     Dates: start: 20060702, end: 20070424
  6. CONIEL [Concomitant]
     Indication: HYPERTENSION
     Route: 048
     Dates: start: 20060604, end: 20070424
  7. ROCALTROL [Concomitant]
     Indication: HYPOKALAEMIA
     Route: 048
     Dates: start: 20060526, end: 20070424

REACTIONS (2)
  - BRADYCARDIA [None]
  - DYSPNOEA [None]
